FAERS Safety Report 4626803-6 (Version None)
Quarter: 2005Q2

REPORT INFORMATION
  Report Type: 
  Country: None (occurrence: None)
  Receive Date: 20050405
  Receipt Date: 20050211
  Transmission Date: 20051028
  Serious: Yes (Life-Threatening, Hospitalization, Other)
  Sender: FDA-Public Use
  Company Number: PHHO2005CA02703

PATIENT
  Age: 56 Year
  Sex: Male

DRUGS (6)
  1. CLOZARIL [Suspect]
     Indication: BIPOLAR DISORDER
     Dosage: UNK, UNK
     Dates: start: 20041213, end: 20041224
  2. CRESTOR [Suspect]
     Dates: end: 20041223
  3. RIVOTRIL [Concomitant]
  4. ANAFRANIL [Concomitant]
  5. MONOCOR [Concomitant]
     Dates: end: 20041225
  6. SEROQUEL [Concomitant]

REACTIONS (6)
  - BRONCHOSPASM [None]
  - DEPRESSED LEVEL OF CONSCIOUSNESS [None]
  - GENERAL PHYSICAL HEALTH DETERIORATION [None]
  - OXYGEN SATURATION ABNORMAL [None]
  - RESPIRATORY DISTRESS [None]
  - TACHYCARDIA [None]
